FAERS Safety Report 8433588-4 (Version None)
Quarter: 2012Q2

REPORT INFORMATION
  Report Type: 
  Country: None (occurrence: None)
  Receive Date: 20120613
  Receipt Date: 20120531
  Transmission Date: 20120825
  Serious: No
  Sender: FDA-Public Use
  Company Number: US-ASTRAZENECA-2012SE36269

PATIENT

DRUGS (1)
  1. BRILINTA [Suspect]
     Route: 048

REACTIONS (4)
  - DYSPNOEA [None]
  - OEDEMA MOUTH [None]
  - CHEST PAIN [None]
  - LIP SWELLING [None]
